FAERS Safety Report 4843509-9 (Version None)
Quarter: 2005Q4

REPORT INFORMATION
  Report Type: 
  Country: None (occurrence: None)
  Receive Date: 20051202
  Receipt Date: 20051118
  Transmission Date: 20060501
  Serious: Yes (Other)
  Sender: FDA-Public Use
  Company Number: PHBS2005SE17116

PATIENT
  Age: 63 Year
  Sex: Male

DRUGS (3)
  1. SELOKEN [Suspect]
  2. CELEBRA [Suspect]
  3. DIOVAN COMP [Suspect]
     Indication: HYPERTENSION
     Dosage: VALS 80 / HCT 12.5 MG/DAY
     Route: 048
     Dates: start: 20030123, end: 20030218

REACTIONS (5)
  - ABDOMINAL PAIN UPPER [None]
  - ANGINA UNSTABLE [None]
  - COLD SWEAT [None]
  - MYOCARDIAL INFARCTION [None]
  - PAIN [None]
